FAERS Safety Report 6925087-3 (Version None)
Quarter: 2010Q3

REPORT INFORMATION
  Report Type: 
  Country: None (occurrence: None)
  Receive Date: 20100810
  Receipt Date: 20100804
  Transmission Date: 20110219
  Serious: Yes (Other)
  Sender: FDA-Public Use
  Company Number: DSA_43479_2010

PATIENT
  Sex: Male

DRUGS (5)
  1. XENAZINE [Suspect]
     Indication: DYSKINESIA
     Dosage: 25 MG BID ORAL
     Route: 048
     Dates: start: 20100609, end: 20100728
  2. ZOLOFT [Concomitant]
  3. TRAMADOL HCL [Concomitant]
  4. ATIVAN [Concomitant]
  5. HYDROCORTISONE [Concomitant]

REACTIONS (6)
  - AGITATION [None]
  - DEPRESSION [None]
  - DYSARTHRIA [None]
  - FATIGUE [None]
  - NERVOUS SYSTEM DISORDER [None]
  - TARDIVE DYSKINESIA [None]
